FAERS Safety Report 4879445-1 (Version None)
Quarter: 2005Q4

REPORT INFORMATION
  Report Type: 
  Country: None (occurrence: None)
  Receive Date: 20051209
  Receipt Date: 20050907
  Transmission Date: 20060501
  Serious: Yes (Other)
  Sender: FDA-Public Use
  Company Number: USA-2002-0000694

PATIENT
  Age: 25 Year
  Sex: Female
  Weight: 59 kg

DRUGS (5)
  1. OXYCONTIN [Suspect]
     Indication: PAIN
     Dates: start: 19960101, end: 19980101
  2. DAYPRO [Concomitant]
  3. SERZONE [Concomitant]
  4. PAXIL [Concomitant]
  5. VALIUM [Concomitant]

REACTIONS (7)
  - ANXIETY [None]
  - BACK PAIN [None]
  - CARPAL TUNNEL SYNDROME [None]
  - DRUG DEPENDENCE [None]
  - HYPOAESTHESIA [None]
  - ROAD TRAFFIC ACCIDENT [None]
  - SEXUAL ASSAULT VICTIM [None]
